FAERS Safety Report 9760312 (Version 1)
Quarter: 2013Q4

REPORT INFORMATION
  Report Type: Spontaneous
  Country: US (occurrence: US)
  Receive Date: 20131216
  Receipt Date: 20131216
  Transmission Date: 20140711
  Serious: No
  Sender: FDA-Public Use
  Company Number: US-GILEAD-2010-0029183

PATIENT
  Sex: Female
  Weight: 86.18 kg

DRUGS (13)
  1. LETAIRIS [Suspect]
     Indication: PULMONARY ARTERIAL HYPERTENSION
     Route: 048
     Dates: start: 20100325, end: 20100408
  2. CRESTOR [Concomitant]
  3. FUROSEMIDE [Concomitant]
  4. LORAZEPAM [Concomitant]
  5. METOPROLOL [Concomitant]
  6. AMLODIPINE [Concomitant]
  7. ASPIRIN [Concomitant]
  8. GABAPENTIN [Concomitant]
  9. MULTIVITAMIN [Concomitant]
  10. MAGNESIUM [Concomitant]
  11. NATURAL CO-Q10 [Concomitant]
  12. HYDROCODONE W/APAP [Concomitant]
  13. PLAVIX [Concomitant]

REACTIONS (1)
  - Oedema [Unknown]
